APPROVED DRUG PRODUCT: HEAD & SHOULDERS CONDITIONER
Active Ingredient: PYRITHIONE ZINC
Strength: 0.3%
Dosage Form/Route: LOTION;TOPICAL
Application: N019412 | Product #002
Applicant: WARNER CHILCOTT CO LLC
Approved: Mar 10, 1986 | RLD: No | RS: No | Type: DISCN